FAERS Safety Report 9531014 (Version 2)
Quarter: 2013Q3

REPORT INFORMATION
  Report Type: Spontaneous
  Country: DE (occurrence: DE)
  Receive Date: 20130918
  Receipt Date: 20130918
  Transmission Date: 20140515
  Serious: Yes (Hospitalization)
  Sender: FDA-Public Use
  Company Number: DE-AMGEN-DEUSP2013010234

PATIENT
  Age: 57 Year
  Sex: Female
  Weight: 85 kg

DRUGS (8)
  1. ENBREL [Suspect]
     Indication: ANKYLOSING SPONDYLITIS
     Dosage: 50 MG, WEEKLY
     Route: 058
     Dates: start: 20051212
  2. JODTHYROX [Concomitant]
     Dosage: UNK
  3. BISOPROLOL FUMARATE [Concomitant]
     Dosage: UNK
  4. NITROPRESS [Concomitant]
     Dosage: UNK
  5. NITROPRESS [Concomitant]
     Dosage: UNK
  6. NOVAMINOSULFON [Concomitant]
     Dosage: UNK
  7. NOVAMINOSULFON [Concomitant]
     Dosage: UNK
  8. SYMBICORT [Concomitant]
     Dosage: UNK

REACTIONS (3)
  - Back pain [Recovering/Resolving]
  - Arthralgia [Recovering/Resolving]
  - Herpes zoster [Not Recovered/Not Resolved]
